FAERS Safety Report 8463464-2 (Version None)
Quarter: 2012Q2

REPORT INFORMATION
  Report Type: 
  Country: None (occurrence: None)
  Receive Date: 20120625
  Receipt Date: 20120615
  Transmission Date: 20120825
  Serious: No
  Sender: FDA-Public Use
  Company Number: US-ASTRAZENECA-2012SE31425

PATIENT
  Age: 58 Year
  Sex: Female

DRUGS (4)
  1. KLONOPIN [Concomitant]
  2. SEROQUEL [Suspect]
     Indication: ANXIETY
     Route: 048
  3. SEROQUEL [Suspect]
     Indication: CONFUSIONAL STATE
     Route: 048
  4. DEPAKOTE [Concomitant]

REACTIONS (3)
  - OFF LABEL USE [None]
  - AKATHISIA [None]
  - AGITATION [None]
